FAERS Safety Report 22208031 (Version 1)
Quarter: 2023Q2

REPORT INFORMATION
  Report Type: Spontaneous
  Country: CN (occurrence: CN)
  Receive Date: 20230413
  Receipt Date: 20230413
  Transmission Date: 20230721
  Serious: Yes (Death, Other)
  Sender: FDA-Public Use
  Company Number: CN-MSNLABS-2023MSNLIT00610

PATIENT

DRUGS (3)
  1. DECITABINE [Suspect]
     Active Substance: DECITABINE
     Indication: Juvenile chronic myelomonocytic leukaemia
     Dosage: 20 MG/M2 FOR 4 DAYS
     Route: 065
  2. CYTARABINE [Suspect]
     Active Substance: CYTARABINE
     Indication: Juvenile chronic myelomonocytic leukaemia
     Dosage: 50-100 MG/M2
     Route: 065
  3. ETOPOSIDE [Suspect]
     Active Substance: ETOPOSIDE
     Indication: Juvenile chronic myelomonocytic leukaemia
     Dosage: 50 MG/M2 FOR 3-5 DAYS
     Route: 065

REACTIONS (8)
  - Ileus [Unknown]
  - Disease progression [Fatal]
  - Hyperbilirubinaemia [Unknown]
  - Sepsis [Unknown]
  - Thrombocytopenia [Unknown]
  - Activated partial thromboplastin time prolonged [Unknown]
  - Hyperuricaemia [Unknown]
  - Infection [Unknown]
